FAERS Safety Report 9767705 (Version 1)
Quarter: 2013Q4

REPORT INFORMATION
  Report Type: Spontaneous
  Country: IT (occurrence: IT)
  Receive Date: 20131217
  Receipt Date: 20131217
  Transmission Date: 20140711
  Serious: Yes (Hospitalization, Other)
  Sender: FDA-Public Use
  Company Number: CHPA2013IT018465

PATIENT
  Age: 76 Year
  Sex: Male

DRUGS (4)
  1. IBUPROFEN [Suspect]
     Indication: ANALGESIC THERAPY
     Dosage: 400 MG, BID
     Route: 048
  2. WARFARIN [Concomitant]
  3. ATORVASTATIN [Concomitant]
  4. BISOPROLOL [Concomitant]

REACTIONS (6)
  - Inappropriate antidiuretic hormone secretion [Recovered/Resolved]
  - Back pain [Recovered/Resolved]
  - Confusional state [Recovered/Resolved]
  - Epigastric discomfort [Recovered/Resolved]
  - Irritability [Recovered/Resolved]
  - Inappropriate schedule of drug administration [Unknown]
